FAERS Safety Report 5554875-3 (Version None)
Quarter: 2007Q4

REPORT INFORMATION
  Report Type: 
  Country: None (occurrence: None)
  Receive Date: 20071213
  Receipt Date: 20071203
  Transmission Date: 20080405
  Serious: Yes (Hospitalization)
  Sender: FDA-Public Use
  Company Number: US-ELI_LILLY_AND_COMPANY-US200712000912

PATIENT

DRUGS (1)
  1. CYMBALTA [Suspect]
     Route: 064
     Dates: start: 20061101, end: 20070724

REACTIONS (3)
  - DRUG EXPOSURE DURING PREGNANCY [None]
  - HAEMORRHAGE [None]
  - UMBILICAL CORD AROUND NECK [None]
